FAERS Safety Report 18252346 (Version 1)
Quarter: 2020Q3

REPORT INFORMATION
  Report Type: Spontaneous
  Country: US (occurrence: US)
  Receive Date: 20200910
  Receipt Date: 20200910
  Transmission Date: 20201103
  Serious: No
  Sender: FDA-Public Use
  Company Number: US-FARMAPROD-202006-0842

PATIENT
  Age: 55 Year
  Sex: Male
  Weight: 95.2 kg

DRUGS (19)
  1. TURMERIC [Concomitant]
     Active Substance: HERBALS\TURMERIC
  2. CALCIUM 600?VIT D3 [Concomitant]
  3. DRY EYE OMEGA BENEFITS [Concomitant]
  4. CLOBEX [Concomitant]
     Active Substance: CLOBETASOL PROPIONATE
  5. TIMOLOL MALEATE. [Concomitant]
     Active Substance: TIMOLOL MALEATE
  6. HALOBETASOL PROPIONATE. [Concomitant]
     Active Substance: HALOBETASOL PROPIONATE
  7. DOVONEX [Concomitant]
     Active Substance: CALCIPOTRIENE
  8. CLOPIDOGREL [Concomitant]
     Active Substance: CLOPIDOGREL BISULFATE
  9. SUMATRIPTAN. [Concomitant]
     Active Substance: SUMATRIPTAN
  10. METHIMAZOLE. [Concomitant]
     Active Substance: METHIMAZOLE
  11. REFRESH OPTIVE [Concomitant]
     Active Substance: CARBOXYMETHYLCELLULOSE SODIUM\GLYCERIN
     Dosage: 0.5%? 0.9%
  12. REFRESH OPTIVE [Concomitant]
     Active Substance: CARBOXYMETHYLCELLULOSE SODIUM\GLYCERIN
     Dosage: 1%? 0.9%
  13. MECLIZINE HCL [Concomitant]
     Active Substance: MECLIZINE HYDROCHLORIDE
  14. OXERVATE [Suspect]
     Active Substance: CENEGERMIN-BKBJ
     Indication: NEUROTROPHIC KERATOPATHY
     Route: 047
     Dates: start: 20200609
  15. FLUOROMETHOLONE. [Concomitant]
     Active Substance: FLUOROMETHOLONE
  16. GINSENG [Concomitant]
     Active Substance: ASIAN GINSENG
  17. CALCIPOTRIENE?BETAMETHASONE [Concomitant]
  18. ASPIRINE [Concomitant]
     Active Substance: ASPIRIN
  19. PROPRANOLOL HCL [Concomitant]
     Active Substance: PROPRANOLOL HYDROCHLORIDE

REACTIONS (4)
  - Eye pain [Unknown]
  - Abnormal sensation in eye [Unknown]
  - Eyelid margin crusting [Unknown]
  - Dysgeusia [Unknown]

NARRATIVE: CASE EVENT DATE: 202006
